FAERS Safety Report 18174706 (Version 4)
Quarter: 2020Q3

REPORT INFORMATION
  Report Type: Spontaneous
  Country: US (occurrence: US)
  Receive Date: 20200820
  Receipt Date: 20200826
  Transmission Date: 20201103
  Serious: No
  Sender: FDA-Public Use
  Company Number: US-PFIZER INC-2020320673

PATIENT
  Age: 75 Year
  Sex: Female
  Weight: 86.18 kg

DRUGS (3)
  1. MEKTOVI [Suspect]
     Active Substance: BINIMETINIB
     Dosage: 45 MG
  2. MEKTOVI [Suspect]
     Active Substance: BINIMETINIB
     Indication: MALIGNANT MELANOMA
     Dosage: 15 MG, 2X/DAY
     Route: 048
     Dates: start: 20200805
  3. MEKTOVI [Suspect]
     Active Substance: BINIMETINIB
     Dosage: 10 IN THE MORNING AND AT 10 AT NIGHT, TWELVE HOURS APART OR EVERY TWELVE HOURS

REACTIONS (4)
  - Pustule [Recovering/Resolving]
  - Rash [Unknown]
  - Acne [Unknown]
  - Oedema peripheral [Unknown]

NARRATIVE: CASE EVENT DATE: 202008
